FAERS Safety Report 14764210 (Version 1)
Quarter: 2018Q2

REPORT INFORMATION
  Report Type: Report from Study
  Country: US (occurrence: US)
  Receive Date: 20180416
  Receipt Date: 20180416
  Transmission Date: 20180711
  Serious: Yes (Hospitalization)
  Sender: FDA-Public Use
  Company Number: US-OTSUKA-2018_008951

PATIENT
  Sex: Male

DRUGS (2)
  1. TOLVAPTAN [Suspect]
     Active Substance: TOLVAPTAN
     Indication: BLOOD OSMOLARITY DECREASED
  2. TOLVAPTAN [Suspect]
     Active Substance: TOLVAPTAN
     Indication: HYPONATRAEMIA
     Dosage: 30 MG, QD
     Route: 048
     Dates: start: 201607

REACTIONS (2)
  - Hospitalisation [Unknown]
  - Back injury [Unknown]
